FAERS Safety Report 6804498-0 (Version None)
Quarter: 2010Q2

REPORT INFORMATION
  Report Type: 
  Country: None (occurrence: None)
  Receive Date: 20100628
  Receipt Date: 20070329
  Transmission Date: 20101027
  Serious: No
  Sender: FDA-Public Use
  Company Number: US-PFIZER INC-2007026349

PATIENT
  Sex: Male
  Weight: 81.65 kg

DRUGS (4)
  1. CADUET [Suspect]
     Indication: BLOOD CHOLESTEROL INCREASED
     Dosage: 5/20MG; 5/20MG
     Dates: start: 20040101, end: 20070319
  2. CADUET [Suspect]
     Indication: HYPERTENSION
  3. BENICAR [Concomitant]
     Dates: start: 20000101
  4. LIPITOR [Concomitant]
     Dates: start: 20000101, end: 20040101

REACTIONS (1)
  - MYALGIA [None]
